FAERS Safety Report 4522272-5 (Version None)
Quarter: 2004Q4

REPORT INFORMATION
  Report Type: 
  Country: None (occurrence: None)
  Receive Date: 20041207
  Receipt Date: 20041124
  Transmission Date: 20050328
  Serious: Yes (Death, Hospitalization, Other)
  Sender: FDA-Public Use
  Company Number: USA040978448

PATIENT
  Age: 45 Year
  Sex: Male
  Weight: 86 kg

DRUGS (21)
  1. GEMZAR [Suspect]
     Indication: PANCREATIC CARCINOMA METASTATIC
     Dosage: 1500 MG OTHER
     Route: 050
     Dates: start: 20040325, end: 20040816
  2. DOXIL [Concomitant]
  3. TAXOTERE (DOCETAXEL0 [Concomitant]
  4. XELODA [Concomitant]
  5. LOVENOX [Concomitant]
  6. K-DUR 10 [Concomitant]
  7. PLETAL (CICLOSTAZOL) [Concomitant]
  8. EFFEXOR XR [Concomitant]
  9. SYNTHROID [Concomitant]
  10. DURICEF 9CEFADROXIL) [Concomitant]
  11. BUMEX (BUMETANIDE0 [Concomitant]
  12. DIFLUCAN [Concomitant]
  13. PERCOCET [Concomitant]
  14. PANCREASE MT [Concomitant]
  15. ANZEMET (DOLASETRON MESILATE0 [Concomitant]
  16. COMPAZINE [Concomitant]
  17. OXYCONTIN [Concomitant]
  18. ZOFRAN [Concomitant]
  19. MEGACE (MEGESTEROL ACETATE) [Concomitant]
  20. BEXTRA [Concomitant]
  21. COUMADIN [Concomitant]

REACTIONS (41)
  - ABDOMINAL DISTENSION [None]
  - ACTIVATED PARTIAL THROMBOPLASTIN TIME PROLONGED [None]
  - ACUTE PULMONARY OEDEMA [None]
  - ALANINE AMINOTRANSFERASE INCREASED [None]
  - ANAEMIA [None]
  - ASCITES [None]
  - ASPARTATE AMINOTRANSFERASE INCREASED [None]
  - ATELECTASIS [None]
  - BACTERIAL INFECTION [None]
  - BLOOD BILIRUBIN INCREASED [None]
  - BLOOD CULTURE POSITIVE [None]
  - BLOOD LACTATE DEHYDROGENASE INCREASED [None]
  - COAGULOPATHY [None]
  - DEPRESSED LEVEL OF CONSCIOUSNESS [None]
  - DRUG INTERACTION [None]
  - GENERALISED OEDEMA [None]
  - HAEMOLYTIC URAEMIC SYNDROME [None]
  - HAEMORRHAGE [None]
  - KLEBSIELLA INFECTION [None]
  - LUNG NEOPLASM [None]
  - LYMPHADENOPATHY MEDIASTINAL [None]
  - MALIGNANT NEOPLASM PROGRESSION [None]
  - METASTASES TO LIVER [None]
  - NEPHROTIC SYNDROME [None]
  - PANCREATIC CARCINOMA METASTATIC [None]
  - PANCYTOPENIA [None]
  - PERFORMANCE STATUS DECREASED [None]
  - PHLEBITIS [None]
  - PROTHROMBIN TIME PROLONGED [None]
  - RENAL FAILURE [None]
  - RESPIRATORY DISTRESS [None]
  - RESPIRATORY FAILURE [None]
  - SKIN DISCOLOURATION [None]
  - SPLENIC CYST [None]
  - SPLENIC HAEMORRHAGE [None]
  - SPLENIC INFARCTION [None]
  - SPLENIC NEOPLASM MALIGNANCY UNSPECIFIED [None]
  - THROMBOTIC THROMBOCYTOPENIC PURPURA [None]
  - TOTAL LUNG CAPACITY DECREASED [None]
  - WEIGHT INCREASED [None]
  - WHITE BLOOD CELL COUNT INCREASED [None]
